FAERS Safety Report 9967936 (Version 2)
Quarter: 2014Q1

REPORT INFORMATION
  Report Type: Spontaneous
  Country: US (occurrence: US)
  Receive Date: 20140306
  Receipt Date: 20140306
  Transmission Date: 20141002
  Serious: Yes (Hospitalization)
  Sender: FDA-Public Use
  Company Number: US-ABBVIE-13P-163-1143896-00

PATIENT
  Age: 67 Year
  Sex: Male
  Weight: 112.14 kg

DRUGS (9)
  1. HUMIRA [Suspect]
     Indication: SARCOIDOSIS
     Dates: start: 2010
  2. TAMSULOSIN [Concomitant]
     Indication: PROSTATIC DISORDER
  3. GABAPENTIN [Concomitant]
     Indication: NEUROPATHY PERIPHERAL
  4. AMIODARONE HYDROCHLORIDE [Concomitant]
     Indication: ATRIAL FLUTTER
  5. LOSARTAN [Concomitant]
     Indication: BLOOD CHOLESTEROL INCREASED
  6. ANDROGEL [Concomitant]
     Indication: BLOOD TESTOSTERONE DECREASED
  7. ERGOCALCIFEROL [Concomitant]
     Indication: VITAMIN D DEFICIENCY
  8. TYLENOL [Concomitant]
     Indication: PRODUCT USED FOR UNKNOWN INDICATION
  9. LORAZEPAM [Concomitant]
     Indication: BIPOLAR DISORDER

REACTIONS (6)
  - Back pain [Recovering/Resolving]
  - Lung infection [Recovered/Resolved]
  - Ear infection [Recovered/Resolved]
  - Lung infection [Recovered/Resolved]
  - Skin mass [Unknown]
  - Fungal infection [Unknown]
